FAERS Safety Report 21690094 (Version 1)
Quarter: 2022Q4

REPORT INFORMATION
  Report Type: Spontaneous
  Country: CN (occurrence: CN)
  Receive Date: 20221206
  Receipt Date: 20221206
  Transmission Date: 20230113
  Serious: Yes (Other)
  Sender: FDA-Public Use
  Company Number: CN-Merck Healthcare KGaA-9368781

PATIENT
  Age: 72 Year
  Sex: Male

DRUGS (6)
  1. ERBITUX [Suspect]
     Active Substance: CETUXIMAB
     Indication: Colon cancer metastatic
     Dosage: UNK UNK, UNKNOWN
     Route: 065
     Dates: start: 20200205
  2. ERBITUX [Suspect]
     Active Substance: CETUXIMAB
     Dosage: 300 MG, UNKNOWN
     Route: 065
     Dates: start: 20200618, end: 20200907
  3. DABRAFENIB [Concomitant]
     Active Substance: DABRAFENIB
     Indication: Colon cancer metastatic
     Dosage: UNK UNK, UNKNOWN
     Route: 065
     Dates: start: 20200205
  4. DABRAFENIB [Concomitant]
     Active Substance: DABRAFENIB
     Dosage: UNK UNK, UNKNOWN
     Route: 065
     Dates: start: 20200618, end: 20200907
  5. TRAMETINIB [Concomitant]
     Active Substance: TRAMETINIB
     Indication: Colon cancer metastatic
     Dosage: UNK UNK, UNKNOWN
     Route: 065
     Dates: start: 20200205
  6. TRAMETINIB [Concomitant]
     Active Substance: TRAMETINIB
     Dosage: UNK UNK, UNKNOWN
     Route: 065
     Dates: start: 20200618, end: 20200907

REACTIONS (2)
  - Carbohydrate antigen 19-9 increased [Recovered/Resolved]
  - Off label use [Unknown]
